FAERS Safety Report 25331418 (Version 1)
Quarter: 2025Q2

REPORT INFORMATION
  Report Type: Spontaneous
  Country: US (occurrence: None)
  Receive Date: 20250518
  Receipt Date: 20250518
  Transmission Date: 20250716
  Serious: No
  Sender: FDA-CTU
  Company Number: None

PATIENT
  Age: 23 Year
  Sex: Female
  Weight: 58 kg

DRUGS (1)
  1. ESCITALOPRAM OXALATE [Suspect]
     Active Substance: ESCITALOPRAM OXALATE
     Indication: Depression
     Dosage: 1 TABLET(S)  DAILY ORAL ?
     Route: 048
     Dates: start: 20240508, end: 20240707

REACTIONS (7)
  - Headache [None]
  - Nausea [None]
  - Decreased appetite [None]
  - Somnolence [None]
  - Loss of libido [None]
  - Hypoaesthesia [None]
  - Sexual dysfunction [None]

NARRATIVE: CASE EVENT DATE: 20240515
